FAERS Safety Report 9684230 (Version 2)
Quarter: 2014Q1

REPORT INFORMATION
  Report Type: Spontaneous
  Country: US (occurrence: US)
  Receive Date: 20131112
  Receipt Date: 20140311
  Transmission Date: 20141002
  Serious: Yes (Hospitalization, Other)
  Sender: FDA-Public Use
  Company Number: US-GLAXOSMITHKLINE-A1049153A

PATIENT
  Age: 48 Year
  Sex: Male
  Weight: 78.2 kg

DRUGS (1)
  1. MELPHALAN [Suspect]
     Indication: PLASMA CELL MYELOMA
     Dosage: 100MGM2 SINGLE DOSE
     Route: 042
     Dates: start: 20130127

REACTIONS (2)
  - Pneumonia [Recovered/Resolved]
  - Neutropenia [Unknown]
